FAERS Safety Report 4580713-1 (Version None)
Quarter: 2005Q1

REPORT INFORMATION
  Report Type: 
  Country: None (occurrence: None)
  Receive Date: 20050214
  Receipt Date: 20040517
  Transmission Date: 20050727
  Serious: Yes (Other)
  Sender: FDA-Public Use
  Company Number: US-GLAXOSMITHKLINE-A0511114A

PATIENT
  Age: 25 Year
  Sex: Male
  Weight: 81.8 kg

DRUGS (4)
  1. LAMICTAL [Suspect]
     Indication: MANIA
     Dosage: 50MG PER DAY
     Route: 048
     Dates: start: 20040511, end: 20040516
  2. SEROQUEL [Concomitant]
     Dosage: 50MG AT NIGHT
  3. ATIVAN [Concomitant]
     Dosage: 2MG AT NIGHT
  4. LEXAPRO [Concomitant]
     Dosage: 10MG PER DAY

REACTIONS (1)
  - RASH [None]
